FAERS Safety Report 12223238 (Version 1)
Quarter: 2016Q1

REPORT INFORMATION
  Report Type: Report from Study
  Country: BR (occurrence: BR)
  Receive Date: 20160330
  Receipt Date: 20160330
  Transmission Date: 20160526
  Serious: Yes (Other)
  Sender: FDA-Public Use
  Company Number: PHHY2015BR147934

PATIENT
  Sex: Female
  Weight: 52 kg

DRUGS (2)
  1. FOLIC ACID. [Concomitant]
     Active Substance: FOLIC ACID
     Indication: SICKLE CELL ANAEMIA
     Route: 065
  2. EXJADE [Suspect]
     Active Substance: DEFERASIROX
     Indication: SICKLE CELL ANAEMIA
     Dosage: 10 MG/KG, QD
     Route: 048
     Dates: start: 201312, end: 201602

REACTIONS (8)
  - Back pain [Unknown]
  - Headache [Recovered/Resolved]
  - Malaise [Unknown]
  - Dizziness [Recovered/Resolved]
  - Sickle cell anaemia with crisis [Unknown]
  - Pain in extremity [Unknown]
  - Arthralgia [Unknown]
  - Serum ferritin increased [Unknown]
